FAERS Safety Report 8393819-6 (Version None)
Quarter: 2012Q2

REPORT INFORMATION
  Report Type: 
  Country: None (occurrence: None)
  Receive Date: 20120530
  Receipt Date: 20120523
  Transmission Date: 20120825
  Serious: No
  Sender: FDA-Public Use
  Company Number: US-PFIZER INC-2012125681

PATIENT
  Sex: Female

DRUGS (2)
  1. PREMARIN [Suspect]
     Dosage: 0.3 MG, UNK
  2. PREMARIN [Suspect]
     Dosage: 0.625 MG, UNK

REACTIONS (2)
  - DIZZINESS [None]
  - NERVOUSNESS [None]
